FAERS Safety Report 6017214-X (Version None)
Quarter: 2008Q4

REPORT INFORMATION
  Report Type: 
  Country: None (occurrence: None)
  Receive Date: 20081219
  Receipt Date: 20081210
  Transmission Date: 20090506
  Serious: Yes (Hospitalization)
  Sender: FDA-Public Use
  Company Number: US025161

PATIENT
  Age: 72 Year
  Sex: Female
  Weight: 63.5036 kg

DRUGS (9)
  1. PROVIGIL [Suspect]
     Dosage: ORAL
     Route: 048
     Dates: end: 20080717
  2. PROVIGIL [Suspect]
     Dosage: ORAL
     Route: 048
     Dates: start: 20080723
  3. XYREM [Suspect]
     Indication: NARCOLEPSY
     Dosage: 2.25 G BID ORAL
     Route: 048
     Dates: start: 20080613, end: 20080716
  4. XYREM [Suspect]
     Indication: NARCOLEPSY
     Dosage: 3 G BID ORAL
     Route: 048
     Dates: start: 20080717, end: 20080724
  5. XYREM [Suspect]
     Indication: NARCOLEPSY
     Dosage: 2.25 G BID ORAL
     Route: 048
     Dates: start: 20080901
  6. XYREM [Suspect]
     Indication: NARCOLEPSY
     Dosage: 2.25 G BID ORAL
     Route: 048
     Dates: start: 20081021, end: 20081024
  7. MORPHINE SULFATE [Concomitant]
  8. PREVACID [Concomitant]
  9. THYROID MEDICATION [Concomitant]

REACTIONS (13)
  - BLOOD PRESSURE INCREASED [None]
  - CLOSTRIDIAL INFECTION [None]
  - CORONARY ARTERY OCCLUSION [None]
  - DIARRHOEA [None]
  - DIZZINESS [None]
  - FOOD POISONING [None]
  - HEADACHE [None]
  - INFECTION [None]
  - MYOCARDIAL INFARCTION [None]
  - ORAL INFECTION [None]
  - PULMONARY OEDEMA [None]
  - TOOTH ABSCESS [None]
  - VOMITING [None]
